FAERS Safety Report 8096177-X (Version None)
Quarter: 2012Q1

REPORT INFORMATION
  Report Type: 
  Country: None (occurrence: None)
  Receive Date: 20120131
  Receipt Date: 20120125
  Transmission Date: 20120608
  Serious: Yes (Hospitalization)
  Sender: FDA-Public Use
  Company Number: DK-GLAXOSMITHKLINE-Z0013531A

PATIENT
  Sex: Male
  Weight: 75 kg

DRUGS (5)
  1. VOTRIENT [Suspect]
     Indication: RENAL CELL CARCINOMA
     Dosage: 800MG PER DAY
     Route: 048
     Dates: start: 20110427
  2. ASPIRIN [Concomitant]
     Indication: THROMBOSIS PROPHYLAXIS
     Dosage: 75MG PER DAY
     Route: 048
     Dates: start: 20000101
  3. ANTIHYPERTENSIVE [Concomitant]
     Indication: HYPERTENSION
     Dosage: 100MG PER DAY
     Route: 048
     Dates: start: 20110601, end: 20120116
  4. SIMVASTATIN [Concomitant]
     Indication: HYPERCHOLESTEROLAEMIA
     Dosage: 40MG PER DAY
     Route: 048
     Dates: start: 20000101
  5. PANTOPRAZOLE [Concomitant]
     Indication: ABDOMINAL DISCOMFORT
     Dosage: 40MG PER DAY
     Route: 048
     Dates: start: 20110504, end: 20120116

REACTIONS (1)
  - DEEP VEIN THROMBOSIS [None]
